FAERS Safety Report 11001761 (Version 1)
Quarter: 2015Q2

REPORT INFORMATION
  Report Type: Report from Study
  Country: FR (occurrence: FR)
  Receive Date: 20150408
  Receipt Date: 20150408
  Transmission Date: 20150821
  Serious: Yes (Other)
  Sender: FDA-Public Use
  Company Number: FR-BAYER-2015-091010

PATIENT
  Age: 30 Year
  Sex: Female

DRUGS (1)
  1. NIFEDIPINE. [Suspect]
     Active Substance: NIFEDIPINE
     Indication: TOCOLYSIS
     Dosage: 30 MG, BID
     Route: 048

REACTIONS (5)
  - Dyspnoea [None]
  - Acute pulmonary oedema [None]
  - Cardiac failure [None]
  - Product use issue [None]
  - Exposure during pregnancy [None]
